FAERS Safety Report 7482337-5 (Version None)
Quarter: 2011Q2

REPORT INFORMATION
  Report Type: 
  Country: None (occurrence: None)
  Receive Date: 20110516
  Receipt Date: 20110421
  Transmission Date: 20111010
  Serious: Yes (Other)
  Sender: FDA-Public Use
  Company Number: US-PFIZER INC-2011101896

PATIENT

DRUGS (3)
  1. CONCERTA [Suspect]
  2. GEODON [Suspect]
  3. REGLAN [Suspect]

REACTIONS (1)
  - TIC [None]
